FAERS Safety Report 7901771-X (Version None)
Quarter: 2011Q4

REPORT INFORMATION
  Report Type: 
  Country: None (occurrence: None)
  Receive Date: 20111108
  Receipt Date: 20111025
  Transmission Date: 20120403
  Serious: Yes (Other)
  Sender: FDA-Public Use
  Company Number: PHFR2011GB03556

PATIENT
  Sex: Female

DRUGS (1)
  1. CLOZARIL [Suspect]
     Indication: SCHIZOPHRENIA
     Dosage: 25 MG X 3 MANE + 25 MG X 4.5 AT BED TIME
     Route: 048
     Dates: start: 20020812

REACTIONS (3)
  - WHITE BLOOD CELL COUNT INCREASED [None]
  - CHRONIC OBSTRUCTIVE PULMONARY DISEASE [None]
  - LEUKOCYTOSIS [None]
